FAERS Safety Report 17287850 (Version 3)
Quarter: 2020Q3

REPORT INFORMATION
  Report Type: Spontaneous
  Country: ES (occurrence: ES)
  Receive Date: 20200120
  Receipt Date: 20200922
  Transmission Date: 20201102
  Serious: Yes (Hospitalization, Other)
  Sender: FDA-Public Use
  Company Number: ES-AUROBINDO-AUR-APL-2020-002276

PATIENT
  Age: 77 Year
  Sex: Male

DRUGS (3)
  1. TRAMADOL. [Concomitant]
     Active Substance: TRAMADOL
     Indication: PRODUCT USED FOR UNKNOWN INDICATION
     Dosage: UNK
     Route: 065
  2. VORICONAZOLE. [Suspect]
     Active Substance: VORICONAZOLE
     Indication: MASTOIDITIS
  3. VORICONAZOLE. [Suspect]
     Active Substance: VORICONAZOLE
     Indication: SCEDOSPORIUM INFECTION
     Dosage: 200 MILLIGRAM, TWO TIMES A DAY (400 MG ONCE A DAY)
     Route: 042

REACTIONS (3)
  - Agitation [Unknown]
  - Nightmare [Unknown]
  - Hallucination, visual [Unknown]
